FAERS Safety Report 5349857-0 (Version None)
Quarter: 2007Q2

REPORT INFORMATION
  Report Type: 
  Country: None (occurrence: None)
  Receive Date: 20070607
  Receipt Date: 20070529
  Transmission Date: 20071010
  Serious: Yes (Hospitalization)
  Sender: FDA-Public Use
  Company Number: RO-BOEHRINGER INGELHEIM PHARMACEUTICALS, INC.-2007-AP-00113AP

PATIENT
  Sex: Male
  Weight: 72 kg

DRUGS (6)
  1. APTIVUS [Suspect]
     Indication: HIV INFECTION
     Route: 048
     Dates: start: 20060710, end: 20070309
  2. NORVIR [Suspect]
     Indication: HIV INFECTION
     Route: 048
     Dates: start: 20060710, end: 20070309
  3. VIDEX [Concomitant]
     Indication: HIV INFECTION
     Route: 048
     Dates: start: 20060710, end: 20070309
  4. ZIAGEN [Concomitant]
     Indication: HIV INFECTION
     Route: 048
     Dates: start: 20060710, end: 20070309
  5. BISEPTOL [Concomitant]
     Route: 048
     Dates: start: 20060710, end: 20070309
  6. ESSENTIALE FORTE [Concomitant]
     Route: 048
     Dates: start: 20060710, end: 20070309

REACTIONS (2)
  - CYTOLYTIC HEPATITIS [None]
  - DRUG TOXICITY [None]
